FAERS Safety Report 7245636-8 (Version None)
Quarter: 2011Q1

REPORT INFORMATION
  Report Type: 
  Country: None (occurrence: None)
  Receive Date: 20110126
  Receipt Date: 20100318
  Transmission Date: 20110831
  Serious: No
  Sender: FDA-Public Use
  Company Number: US-BAUSCH-2010BL001505

PATIENT
  Age: 80 Year
  Sex: Female

DRUGS (2)
  1. TRAVATAN [Concomitant]
     Indication: GLAUCOMA
  2. NEOMYCIN AND POLYMXIN B SULFATES AND HYDROCORTISONE [Suspect]
     Indication: EAR INFECTION
     Route: 001
     Dates: start: 20090416, end: 20090426

REACTIONS (1)
  - TINNITUS [None]
